FAERS Safety Report 12681799 (Version 1)
Quarter: 2016Q3

REPORT INFORMATION
  Report Type: Report from Study
  Country: BR (occurrence: BR)
  Receive Date: 20160824
  Receipt Date: 20160824
  Transmission Date: 20161109
  Serious: Yes (Hospitalization, Other)
  Sender: FDA-Public Use
  Company Number: PHHY2016BR115727

PATIENT
  Age: 75 Year
  Sex: Female

DRUGS (3)
  1. DIOVAN AMLO FIX [Suspect]
     Active Substance: AMLODIPINE\VALSARTAN
     Dosage: 0.5 DF, (AMLODIPINE 5 MG, VALSARTAN 320 MG)
     Route: 065
  2. NEBILET [Concomitant]
     Active Substance: NEBIVOLOL
     Indication: HYPERTENSION
     Dosage: 5 MG, QD
     Route: 048
     Dates: end: 20160713
  3. DIOVAN AMLO FIX [Suspect]
     Active Substance: AMLODIPINE\VALSARTAN
     Indication: HYPERTENSION
     Dosage: 1 DF, QD (AMLODIPINE 5 MG, VALSARTAN 320 MG) (MANY YEARS AGO)
     Route: 048

REACTIONS (8)
  - Malaise [Unknown]
  - Obstruction [Unknown]
  - Angina pectoris [Unknown]
  - Hypotension [Unknown]
  - Feeling abnormal [Unknown]
  - Wrong technique in product usage process [Unknown]
  - Diabetes mellitus [Unknown]
  - Catheterisation cardiac [Unknown]

NARRATIVE: CASE EVENT DATE: 20160716
